FAERS Safety Report 16711137 (Version 1)
Quarter: 2019Q3

REPORT INFORMATION
  Report Type: Spontaneous
  Country: IT (occurrence: IT)
  Receive Date: 20190816
  Receipt Date: 20190816
  Transmission Date: 20191004
  Serious: Yes (Other)
  Sender: FDA-Public Use
  Company Number: IT-ALLERGAN-1933560US

PATIENT
  Sex: Female
  Weight: 54 kg

DRUGS (2)
  1. EN [Suspect]
     Active Substance: DELORAZEPAM
     Indication: DRUG ABUSE
     Dosage: OVERDOSE : 20 ML
     Route: 048
     Dates: start: 20190729, end: 20190729
  2. ESCITALOPRAM OXALATE - BP [Suspect]
     Active Substance: ESCITALOPRAM OXALATE
     Indication: DRUG ABUSE
     Dosage: OVERDOSE 1200 MG
     Route: 048
     Dates: start: 20190729, end: 20190729

REACTIONS (4)
  - Electrocardiogram QT prolonged [Unknown]
  - Drug abuse [Recovering/Resolving]
  - Intentional overdose [Recovering/Resolving]
  - General physical health deterioration [Unknown]

NARRATIVE: CASE EVENT DATE: 20190729
